FAERS Safety Report 16940924 (Version 1)
Quarter: 2019Q4

REPORT INFORMATION
  Report Type: Spontaneous
  Country: US (occurrence: US)
  Receive Date: 20191018
  Receipt Date: 20191018
  Transmission Date: 20200122
  Serious: Yes (Hospitalization, Disabling)
  Sender: FDA-Public Use
  Company Number: None

PATIENT
  Age: 46 Year
  Weight: 74.7 kg

DRUGS (12)
  1. ZIPRASIDON [Suspect]
     Active Substance: ZIPRASIDONE HYDROCHLORIDE
     Indication: POST-TRAUMATIC STRESS DISORDER
     Dosage: ?          QUANTITY:2 CAPSULE(S);?
     Route: 048
     Dates: start: 20180102, end: 20190413
  2. ZOLOFT [Concomitant]
     Active Substance: SERTRALINE HYDROCHLORIDE
  3. PRAZOSIN. [Concomitant]
     Active Substance: PRAZOSIN
  4. ACROSS [Concomitant]
  5. ATORVASTATIN [Concomitant]
     Active Substance: ATORVASTATIN
  6. CLONAZEPAM. [Concomitant]
     Active Substance: CLONAZEPAM
  7. ZIPRASIDON [Concomitant]
     Active Substance: ZIPRASIDONE HYDROCHLORIDE
  8. VITAMIN D3 [Concomitant]
     Active Substance: CHOLECALCIFEROL
  9. BUPROPION HCL [Concomitant]
     Active Substance: BUPROPION HYDROCHLORIDE
  10. ZIPRASIDON [Suspect]
     Active Substance: ZIPRASIDONE HYDROCHLORIDE
     Indication: SCHIZOAFFECTIVE DISORDER
     Dosage: ?          QUANTITY:2 CAPSULE(S);?
     Route: 048
     Dates: start: 20180102, end: 20190413
  11. ZIPRASIDON [Suspect]
     Active Substance: ZIPRASIDONE HYDROCHLORIDE
     Indication: NIGHTMARE
     Dosage: ?          QUANTITY:2 CAPSULE(S);?
     Route: 048
     Dates: start: 20180102, end: 20190413
  12. JANUVIA [Concomitant]
     Active Substance: SITAGLIPTIN PHOSPHATE

REACTIONS (14)
  - Pruritus [None]
  - Nightmare [None]
  - Nervousness [None]
  - Suspiciousness [None]
  - Hypertension [None]
  - Parkinsonism [None]
  - Drooling [None]
  - Suicidal ideation [None]
  - Emotional distress [None]
  - Musculoskeletal stiffness [None]
  - Hyperglycaemia [None]
  - Anxiety [None]
  - Tardive dyskinesia [None]
  - Aggression [None]

NARRATIVE: CASE EVENT DATE: 20181226
